FAERS Safety Report 8926016 (Version 3)
Quarter: 2012Q4

REPORT INFORMATION
  Report Type: 
  Country: JP (occurrence: JP)
  Receive Date: 20121126
  Receipt Date: 20121221
  Transmission Date: 20130627
  Serious: Yes (Hospitalization, Other)
  Sender: FDA-Public Use
  Company Number: JP-ABBOTT-12P-087-0991009-00

PATIENT
  Age: 39 Year
  Sex: Female
  Weight: 42.9 kg

DRUGS (15)
  1. HUMIRA [Suspect]
     Indication: CROHN^S DISEASE
     Route: 058
     Dates: start: 20110221, end: 20110221
  2. HUMIRA [Suspect]
     Route: 058
     Dates: start: 20110307, end: 20110307
  3. HUMIRA [Suspect]
     Route: 058
     Dates: start: 20110321, end: 20110502
  4. HUMIRA [Suspect]
     Route: 058
     Dates: start: 20111202, end: 20111202
  5. HUMIRA [Suspect]
     Route: 058
     Dates: start: 20111216, end: 20111216
  6. HUMIRA [Suspect]
     Route: 058
     Dates: start: 20120113
  7. MESALAZINE [Concomitant]
     Indication: PRODUCT USED FOR UNKNOWN INDICATION
     Route: 048
     Dates: start: 20110107
  8. FULCALIQ [Concomitant]
     Indication: PRODUCT USED FOR UNKNOWN INDICATION
     Route: 041
     Dates: start: 20100604
  9. HEPARIN SODIUM [Concomitant]
     Indication: PRODUCT USED FOR UNKNOWN INDICATION
     Dates: start: 20100604
  10. RABEPRAZOLE SODIUM [Concomitant]
     Indication: PRODUCT USED FOR UNKNOWN INDICATION
     Dates: start: 20100312
  11. BIFIDOBACTERIUM [Concomitant]
     Indication: PRODUCT USED FOR UNKNOWN INDICATION
     Route: 048
     Dates: start: 20050128
  12. SODIUM RISEDRONATE HYDRATE [Concomitant]
     Indication: PRODUCT USED FOR UNKNOWN INDICATION
     Route: 048
     Dates: start: 20110817
  13. NATURAL ALUMINUM SILICATE [Concomitant]
     Indication: PRODUCT USED FOR UNKNOWN INDICATION
     Dates: start: 20110817
  14. CODEINE PHOSPHATE HYDRATE [Concomitant]
     Indication: PRODUCT USED FOR UNKNOWN INDICATION
     Route: 048
     Dates: start: 20110817
  15. HERBAL MEDICINE (KAKKONTO) [Concomitant]
     Indication: PRODUCT USED FOR UNKNOWN INDICATION
     Route: 048
     Dates: start: 20110107

REACTIONS (5)
  - Hospitalisation [Unknown]
  - Anastomotic leak [Unknown]
  - Ileocolectomy [Unknown]
  - Abscess intestinal [Unknown]
  - Hepatitis B [Recovered/Resolved]
